FAERS Safety Report 8213813-5 (Version None)
Quarter: 2012Q1

REPORT INFORMATION
  Report Type: 
  Country: None (occurrence: None)
  Receive Date: 20120316
  Receipt Date: 20120309
  Transmission Date: 20120608
  Serious: Yes (Death, Hospitalization, Other)
  Sender: FDA-Public Use
  Company Number: BR-BIOGENIDEC-2012BI008798

PATIENT
  Age: 45 Year
  Sex: Female

DRUGS (3)
  1. TYSABRI [Suspect]
     Indication: MULTIPLE SCLEROSIS
     Route: 042
     Dates: end: 20120306
  2. UNSPECIFIED MEDICINE [Concomitant]
     Indication: HYPOAESTHESIA
     Route: 039
     Dates: start: 20120229, end: 20120229
  3. UNSPECIFIED MEDICINE [Concomitant]
     Indication: MUSCULOSKELETAL DISORDER
     Route: 039
     Dates: start: 20120229, end: 20120229

REACTIONS (5)
  - MUSCULOSKELETAL DISORDER [None]
  - CARDIAC FAILURE [None]
  - HYPOAESTHESIA [None]
  - RESPIRATORY FAILURE [None]
  - COMA [None]
